APPROVED DRUG PRODUCT: PREVEN EMERGENCY CONTRACEPTIVE KIT
Active Ingredient: ETHINYL ESTRADIOL; LEVONORGESTREL
Strength: 0.05MG;0.25MG
Dosage Form/Route: TABLET;ORAL
Application: N020946 | Product #001
Applicant: TEVA BRANDED PHARMACEUTICAL PRODUCTS R AND D INC
Approved: Sep 1, 1998 | RLD: No | RS: No | Type: DISCN